FAERS Safety Report 12999018 (Version 1)
Quarter: 2016Q4

REPORT INFORMATION
  Report Type: Not Available
  Country: FR (occurrence: FR)
  Receive Date: 20161205
  Receipt Date: 20161205
  Transmission Date: 20170207
  Serious: Yes (Death)
  Sender: FDA-Public Use
  Company Number: FR-MUNDIPHARMA DS AND PHARMACOVIGILANCE-GBR-2016-0042047

PATIENT
  Age: 12 Year
  Sex: Female

DRUGS (5)
  1. ALPRAZOLAM. [Concomitant]
     Active Substance: ALPRAZOLAM
  2. MORPHINE [Concomitant]
     Active Substance: MORPHINE
  3. OXYCODONE HYDROCHLORIDE. [Suspect]
     Active Substance: OXYCODONE HYDROCHLORIDE
     Indication: PRODUCT USED FOR UNKNOWN INDICATION
     Route: 045
  4. PRAZEPAM [Concomitant]
     Active Substance: PRAZEPAM
  5. NORDIAZEPAM [Concomitant]
     Active Substance: NORDAZEPAM

REACTIONS (8)
  - Pulmonary oedema [Fatal]
  - Incorrect route of drug administration [Fatal]
  - Overdose [Fatal]
  - Visceral congestion [Fatal]
  - Brain oedema [Fatal]
  - Drug abuse [Fatal]
  - Left ventricular hypertrophy [Fatal]
  - Right ventricular dysfunction [Fatal]

NARRATIVE: CASE EVENT DATE: 2014
